FAERS Safety Report 7325018-0 (Version None)
Quarter: 2011Q1

REPORT INFORMATION
  Report Type: 
  Country: None (occurrence: None)
  Receive Date: 20110301
  Receipt Date: 20110225
  Transmission Date: 20110831
  Serious: Yes (Hospitalization, Other)
  Sender: FDA-Public Use
  Company Number: DE-BRISTOL-MYERS SQUIBB COMPANY-15453681

PATIENT
  Age: 68 Year
  Sex: Male

DRUGS (8)
  1. LACTULOSE (GEN) SYRUP [Concomitant]
     Indication: CONSTIPATION
     Route: 048
     Dates: start: 20100729
  2. SITAGLIPTIN PHOSPHATE [Suspect]
     Indication: TYPE 2 DIABETES MELLITUS
     Route: 048
     Dates: start: 20100621
  3. FENOFIBRATE [Concomitant]
     Indication: HYPERTRIGLYCERIDAEMIA
     Route: 048
  4. MATRIFEN [Concomitant]
     Indication: PAIN
     Route: 003
  5. BLINDED: DAPAGLIFLOZIN [Suspect]
     Indication: TYPE 2 DIABETES MELLITUS
     Dosage: LAST DOSE OF STUDY ADMIN.19JAN11
     Route: 048
     Dates: start: 20100929, end: 20110119
  6. OMEPRAZOLE [Concomitant]
     Indication: GASTROOESOPHAGEAL REFLUX DISEASE
     Route: 048
     Dates: start: 20100729
  7. METFORMIN HCL [Suspect]
     Indication: TYPE 2 DIABETES MELLITUS
     Dosage: UNK-20JUN10 21JUN10-5DEC10 10DEC2010
     Route: 048
     Dates: start: 20100621
  8. BLINDED: PLACEBO [Suspect]
     Indication: TYPE 2 DIABETES MELLITUS
     Dosage: LAST DOSE OF STUDY ADMIN.19JAN11
     Route: 048
     Dates: start: 20100929, end: 20110119

REACTIONS (2)
  - VOMITING [None]
  - ABDOMINAL PAIN UPPER [None]
